FAERS Safety Report 5335880-9 (Version None)
Quarter: 2007Q2

REPORT INFORMATION
  Report Type: 
  Country: None (occurrence: None)
  Receive Date: 20070301
  Receipt Date: 20060207
  Transmission Date: 20071010
  Serious: No
  Sender: FDA-Public Use
  Company Number: 221866

PATIENT
  Age: 15 Year
  Sex: Female
  Weight: 65.6 kg

DRUGS (1)
  1. NUTROPIN AQ [Suspect]
     Indication: GROWTH HORMONE DEFICIENCY
     Dosage: 4.5 MG, 6/WEEK, SUBCUTANEOUS
     Route: 058
     Dates: start: 20030512, end: 20060125

REACTIONS (1)
  - SCOLIOSIS [None]
